FAERS Safety Report 14242314 (Version 1)
Quarter: 2017Q4

REPORT INFORMATION
  Report Type: Spontaneous
  Country: US (occurrence: US)
  Receive Date: 20171201
  Receipt Date: 20171201
  Transmission Date: 20180321
  Serious: No
  Sender: FDA-Public Use
  Company Number: US-PFIZER INC-2017512807

PATIENT
  Age: 74 Year
  Sex: Female
  Weight: 84 kg

DRUGS (15)
  1. MORPHINE SULFATE. [Suspect]
     Active Substance: MORPHINE SULFATE
     Dosage: UNK
  2. VANCOMYCIN HCL [Suspect]
     Active Substance: VANCOMYCIN HYDROCHLORIDE
     Dosage: UNK
     Dates: start: 20170322
  3. ELIQUIS [Concomitant]
     Active Substance: APIXABAN
     Dosage: 0.5 DF, 2X/DAY
     Route: 048
     Dates: start: 20160922
  4. HYDRALAZINE HYDROCHLORIDE. [Concomitant]
     Active Substance: HYDRALAZINE HYDROCHLORIDE
     Dosage: 1 DF, 2X/DAY
     Route: 048
     Dates: start: 20160922
  5. AMIODARONE HYDROCHLORIDE. [Concomitant]
     Active Substance: AMIODARONE HYDROCHLORIDE
     Dosage: 1 DF, 1X/DAY
     Route: 048
     Dates: start: 20160922
  6. FUROSEMIDE. [Concomitant]
     Active Substance: FUROSEMIDE
     Dosage: UNK
     Route: 042
     Dates: start: 20160716
  7. ENOXAPARIN [Concomitant]
     Active Substance: ENOXAPARIN
     Dosage: 30 MG, 1X/DAY
     Route: 048
     Dates: start: 20161116
  8. GABAPENTIN. [Suspect]
     Active Substance: GABAPENTIN
     Dosage: UNK
  9. ISOSORBIDE MONONITRATE. [Concomitant]
     Active Substance: ISOSORBIDE MONONITRATE
     Dosage: 1 DF, 2X/DAY
     Route: 048
     Dates: start: 20160922
  10. ASPIRIN. [Concomitant]
     Active Substance: ASPIRIN
     Dosage: 1 DF, 1X/DAY
     Route: 048
     Dates: start: 20160922
  11. VALSARTAN. [Concomitant]
     Active Substance: VALSARTAN
     Dosage: 1 DF, 1X/DAY
     Route: 048
     Dates: start: 20160922
  12. LEVOTHYROXINE SODIUM. [Concomitant]
     Active Substance: LEVOTHYROXINE SODIUM
     Dosage: 1 DF, 1X/DAY
     Route: 048
     Dates: start: 20160922
  13. LIPITOR [Concomitant]
     Active Substance: ATORVASTATIN CALCIUM
     Dosage: 1 DF, 1X/DAY
     Route: 048
     Dates: start: 20161116
  14. ULORIC [Concomitant]
     Active Substance: FEBUXOSTAT
     Dosage: 1 DF, 1X/DAY
     Route: 048
     Dates: start: 20160922
  15. FUROSEMIDE. [Concomitant]
     Active Substance: FUROSEMIDE
     Dosage: 1 DF, 1X/DAY
     Route: 048
     Dates: start: 20160922

REACTIONS (1)
  - Drug hypersensitivity [Unknown]
